FAERS Safety Report 9469268 (Version 1)
Quarter: 2013Q3

REPORT INFORMATION
  Report Type: Spontaneous
  Country: GB (occurrence: GB)
  Receive Date: 20130821
  Receipt Date: 20130821
  Transmission Date: 20140515
  Serious: Yes (Disabling, Other)
  Sender: FDA-Public Use
  Company Number: GB-WATSON-2013-14880

PATIENT
  Age: 38 Year
  Sex: Male

DRUGS (3)
  1. LAMOTRIGINE (UNKNOWN) [Suspect]
     Indication: TEMPORAL LOBE EPILEPSY
     Dosage: 100 MG, UNK
     Route: 048
     Dates: start: 20130722
  2. LAMOTRIGINE (UNKNOWN) [Suspect]
     Dosage: 50 MG, UNK
     Route: 048
     Dates: start: 20130722
  3. KEPPRA [Concomitant]
     Indication: PRODUCT USED FOR UNKNOWN INDICATION
     Route: 065

REACTIONS (4)
  - Hepatic pain [Recovered/Resolved]
  - Dizziness [Recovered/Resolved]
  - Pyrexia [Recovered/Resolved]
  - Product packaging issue [Recovered/Resolved]
